FAERS Safety Report 8609665-1 (Version None)
Quarter: 2012Q3

REPORT INFORMATION
  Report Type: 
  Country: None (occurrence: None)
  Receive Date: 20120821
  Receipt Date: 20120814
  Transmission Date: 20120928
  Serious: Yes (Other)
  Sender: FDA-Public Use
  Company Number: PHHY2012BR070467

PATIENT
  Age: 6 Year
  Sex: Female

DRUGS (4)
  1. NITRAZEPAM [Concomitant]
     Dosage: 10 MG, UNK
  2. LAMOTRIGINE [Suspect]
     Indication: EPILEPSY
     Dosage: 200 MG, UNK
  3. LAMOTRIGINE [Suspect]
     Dosage: 150 MG, UNK
  4. VALPROATE SODIUM [Suspect]
     Indication: EPILEPSY
     Dosage: 90 MG, UNK

REACTIONS (7)
  - VERTIGO [None]
  - VOMITING [None]
  - ATAXIA [None]
  - DIZZINESS [None]
  - TREMOR [None]
  - SACCADIC EYE MOVEMENT [None]
  - HEADACHE [None]
